FAERS Safety Report 25105269 (Version 1)
Quarter: 2025Q1

REPORT INFORMATION
  Report Type: Other
  Country: US (occurrence: US)
  Receive Date: 20250321
  Receipt Date: 20250321
  Transmission Date: 20250408
  Serious: Yes (Hospitalization)
  Sender: ITALFARMACO SPA
  Company Number: US-ITALFARMACO SPA-2173402

PATIENT
  Age: 21 Year
  Sex: Male
  Weight: 37.5 kg

DRUGS (11)
  1. DUVYZAT [Suspect]
     Active Substance: GIVINOSTAT
     Indication: Duchenne muscular dystrophy
     Dates: start: 20240927
  2. AMONDYS 45 [Concomitant]
     Active Substance: CASIMERSEN
  3. TERBINAFINE [Concomitant]
     Active Substance: TERBINAFINE
  4. SOLU-CORTEF [Concomitant]
     Active Substance: HYDROCORTISONE SODIUM SUCCINATE
  5. ONDANSETRON [Concomitant]
     Active Substance: ONDANSETRON
  6. METOPROLOL [Concomitant]
     Active Substance: METOPROLOL
  7. LISINOPRIL [Concomitant]
     Active Substance: LISINOPRIL
  8. HYDROXYZINE [Concomitant]
     Active Substance: HYDROXYZINE HYDROCHLORIDE
  9. GUANFACINE [Concomitant]
     Active Substance: GUANFACINE
  10. EPLERENONE [Concomitant]
     Active Substance: EPLERENONE
  11. EMFLAZA [Concomitant]
     Active Substance: DEFLAZACORT

REACTIONS (3)
  - Localised infection [Unknown]
  - Product dose omission issue [Unknown]
  - Influenza [Unknown]

NARRATIVE: CASE EVENT DATE: 20250306
